FAERS Safety Report 5090726-1 (Version None)
Quarter: 2006Q3

REPORT INFORMATION
  Report Type: 
  Country: None (occurrence: None)
  Receive Date: 20060823
  Receipt Date: 20060727
  Transmission Date: 20061208
  Serious: Yes (Death)
  Sender: FDA-Public Use
  Company Number: 2006CG001605

PATIENT
  Age: 5 Day
  Sex: Female

DRUGS (4)
  1. CUROSURF [Suspect]
     Indication: NEONATAL RESPIRATORY DISTRESS SYNDROME
     Dosage: 72 MILLIGRAMS, INTRATRACHAEL
     Route: 039
     Dates: start: 20060530, end: 20060530
  2. AMPICILLIN [Concomitant]
  3. GENTAMICIN [Concomitant]
  4. FLUCONAZOLE [Concomitant]

REACTIONS (11)
  - BRADYCARDIA NEONATAL [None]
  - CONGENITAL GENITAL MALFORMATION [None]
  - DYSPNOEA [None]
  - ERYTHEMA [None]
  - HYPERTENSION [None]
  - LATE METABOLIC ACIDOSIS OF NEWBORN [None]
  - MUCOUS MEMBRANE DISORDER [None]
  - NEONATAL TACHYPNOEA [None]
  - OXYGEN CONSUMPTION DECREASED [None]
  - PLACENTAL INSUFFICIENCY [None]
  - PNEUMOTHORAX [None]
